FAERS Safety Report 4503804-X (Version None)
Quarter: 2004Q3

REPORT INFORMATION
  Report Type: 
  Country: None (occurrence: None)
  Receive Date: 20040928
  Receipt Date: 20040615
  Transmission Date: 20050211
  Serious: No
  Sender: FDA-Public Use
  Company Number: 04P-163-0263919-00

PATIENT
  Sex: Male

DRUGS (1)
  1. HUMIRA [Suspect]
     Dosage: SEE IMAGE
     Route: 058

REACTIONS (3)
  - CONDITION AGGRAVATED [None]
  - EYE IRRITATION [None]
  - VISION BLURRED [None]
